FAERS Safety Report 14064948 (Version 2)
Quarter: 2017Q4

REPORT INFORMATION
  Report Type: Spontaneous
  Country: US (occurrence: US)
  Receive Date: 20171009
  Receipt Date: 20171025
  Transmission Date: 20180321
  Serious: Yes (Other)
  Sender: FDA-Public Use
  Company Number: US-BAYER-2017-188368

PATIENT
  Age: 6 Year
  Sex: Male
  Weight: 19.96 kg

DRUGS (2)
  1. KOGENATE FS [Suspect]
     Active Substance: ANTIHEMOPHILIC FACTOR, HUMAN RECOMBINANT
     Indication: FACTOR VIII DEFICIENCY
     Dosage: UNK, ONE DOSE
     Route: 042
  2. KOGENATE FS [Suspect]
     Active Substance: ANTIHEMOPHILIC FACTOR, HUMAN RECOMBINANT
     Indication: FACTOR VIII DEFICIENCY
     Dosage: 1500 IU, QOD (+/-10%)
     Route: 042
     Dates: start: 201107

REACTIONS (3)
  - Haemarthrosis [None]
  - Haemorrhage [Recovered/Resolved]
  - Mouth haemorrhage [None]

NARRATIVE: CASE EVENT DATE: 20170921
